FAERS Safety Report 8098296 (Version 5)
Quarter: 2013Q3

REPORT INFORMATION
  Report Type: Spontaneous
  Country: US (occurrence: US)
  Receive Date: 20110819
  Receipt Date: 20130821
  Transmission Date: 20140515
  Serious: Yes (Death, Hospitalization)
  Sender: FDA-Public Use
  Company Number: US-GLAXOSMITHKLINE-A0915585A

PATIENT
  Age: 60 Year
  Sex: Male
  Weight: 119.8 kg

DRUGS (2)
  1. AVANDIA [Suspect]
     Indication: DIABETES MELLITUS
     Dosage: 4MG PER DAY
     Route: 048
     Dates: end: 20070122
  2. AVANDAMET [Suspect]
     Indication: DIABETES MELLITUS
     Route: 048
     Dates: end: 20070122

REACTIONS (5)
  - Acute myocardial infarction [Fatal]
  - Cardiac failure congestive [Fatal]
  - Hypertrophic cardiomyopathy [Unknown]
  - Coronary artery disease [Fatal]
  - Arteriosclerosis coronary artery [Unknown]
